FAERS Safety Report 5995142-3 (Version None)
Quarter: 2008Q4

REPORT INFORMATION
  Report Type: 
  Country: None (occurrence: None)
  Receive Date: 20081212
  Receipt Date: 20081210
  Transmission Date: 20090506
  Serious: Yes (Life-Threatening, Other)
  Sender: FDA-Public Use
  Company Number: PHHY2008GB31300

PATIENT
  Age: 46 Year
  Sex: Female

DRUGS (9)
  1. METHYLPHENIDATE HCL [Suspect]
     Indication: ATTENTION DEFICIT/HYPERACTIVITY DISORDER
     Dosage: 20 MG
     Route: 048
     Dates: start: 20081019, end: 20081024
  2. ALBUTEROL SULFATE [Concomitant]
  3. LITHIUM CARBONATE [Concomitant]
     Indication: AFFECTIVE DISORDER
     Dosage: UNK
     Route: 048
     Dates: start: 20080130, end: 20081024
  4. SERETIDE ^ALLEN + HANBURYS LTD^ [Concomitant]
  5. LEVOTHYROXINE SODIUM [Concomitant]
     Indication: HYPOTHYROIDISM
     Dosage: 125MG
     Route: 048
  6. TIOTROPIUM BROMIDE [Concomitant]
     Indication: ASTHMA
     Dosage: 18 MG INHALATION
     Dates: start: 20081010, end: 20081024
  7. TRAMADOL HCL [Concomitant]
  8. CETIRIZINE HCL [Concomitant]
     Dosage: 10 MG
     Route: 048
     Dates: start: 20080808, end: 20081024
  9. ZOPICLONE [Concomitant]
     Dosage: 7.5 MG

REACTIONS (11)
  - ARTHRALGIA [None]
  - CHILLS [None]
  - HEADACHE [None]
  - HYPERHIDROSIS [None]
  - HYPERPYREXIA [None]
  - MUSCULOSKELETAL STIFFNESS [None]
  - MYALGIA [None]
  - NAUSEA [None]
  - NEUROMYOPATHY [None]
  - PYREXIA [None]
  - VOMITING [None]
